FAERS Safety Report 6829249-5 (Version None)
Quarter: 2010Q3

REPORT INFORMATION
  Report Type: 
  Country: None (occurrence: None)
  Receive Date: 20100709
  Receipt Date: 20070307
  Transmission Date: 20110219
  Serious: No
  Sender: FDA-Public Use
  Company Number: US-PFIZER INC-2007019543

PATIENT
  Sex: Female
  Weight: 54.43 kg

DRUGS (12)
  1. CHANTIX [Suspect]
     Indication: SMOKING CESSATION THERAPY
     Dates: start: 20070102
  2. WELLBUTRIN [Concomitant]
  3. EVISTA [Concomitant]
  4. ZYRTEC [Concomitant]
  5. THYROID TAB [Concomitant]
  6. PAXIL [Concomitant]
  7. KLONOPIN [Concomitant]
  8. NORVASC [Concomitant]
  9. RESTORIL [Concomitant]
  10. COMPAZINE [Concomitant]
     Indication: NAUSEA
  11. CAFFEINE [Concomitant]
     Indication: MIGRAINE
  12. NAPROSYN [Concomitant]

REACTIONS (1)
  - HEADACHE [None]
